FAERS Safety Report 10661095 (Version 1)
Quarter: 2014Q4

REPORT INFORMATION
  Report Type: Spontaneous
  Country: US (occurrence: US)
  Receive Date: 20141218
  Receipt Date: 20141218
  Transmission Date: 20150529
  Serious: Yes (Hospitalization)
  Sender: FDA-Public Use
  Company Number: US-PFIZER INC-2014343088

PATIENT
  Age: 70 Year
  Sex: Male
  Weight: 120 kg

DRUGS (1)
  1. SUTENT [Suspect]
     Active Substance: SUNITINIB MALATE
     Indication: GASTROINTESTINAL STROMAL TUMOUR
     Dosage: 50 MG, DAILY
     Route: 048
     Dates: start: 20141031, end: 20141125

REACTIONS (5)
  - Fatigue [Unknown]
  - Mouth swelling [Unknown]
  - Swollen tongue [Unknown]
  - Localised infection [Unknown]
  - Hypophagia [Unknown]
